FAERS Safety Report 26122053 (Version 1)
Quarter: 2025Q4

REPORT INFORMATION
  Report Type: Spontaneous
  Country: EU (occurrence: EU)
  Receive Date: 20251204
  Receipt Date: 20251204
  Transmission Date: 20260119
  Serious: Yes (Other)
  Sender: MYLAN
  Company Number: None

PATIENT
  Age: 63 Year
  Sex: Male
  Weight: 93 kg

DRUGS (24)
  1. ROCURONIUM [Suspect]
     Active Substance: ROCURONIUM BROMIDE
     Indication: Product used for unknown indication
     Dosage: 50 MILLIGRAM, START DATE AT 10.30
  2. ROCURONIUM [Suspect]
     Active Substance: ROCURONIUM BROMIDE
     Dosage: 50 MILLIGRAM, START DATE AT 10.30
     Route: 042
  3. ROCURONIUM [Suspect]
     Active Substance: ROCURONIUM BROMIDE
     Dosage: 50 MILLIGRAM, START DATE AT 10.30
     Route: 042
  4. ROCURONIUM [Suspect]
     Active Substance: ROCURONIUM BROMIDE
     Dosage: 50 MILLIGRAM, START DATE AT 10.30
  5. ACETAMINOPHEN [Suspect]
     Active Substance: ACETAMINOPHEN
     Indication: Product used for unknown indication
     Dosage: 1 GRAM, Q6H, START DATE AT 12.30, END DATE AT 6.30 AM
  6. ACETAMINOPHEN [Suspect]
     Active Substance: ACETAMINOPHEN
     Dosage: 1 GRAM, Q6H, START DATE AT 12.30, END DATE AT 6.30 AM
     Route: 042
  7. ACETAMINOPHEN [Suspect]
     Active Substance: ACETAMINOPHEN
     Dosage: 1 GRAM, Q6H, START DATE AT 12.30, END DATE AT 6.30 AM
     Route: 042
  8. ACETAMINOPHEN [Suspect]
     Active Substance: ACETAMINOPHEN
     Dosage: 1 GRAM, Q6H, START DATE AT 12.30, END DATE AT 6.30 AM
  9. METAMIZOLE SODIUM [Suspect]
     Active Substance: METAMIZOLE SODIUM
     Indication: Product used for unknown indication
     Dosage: 2.5 GRAM, BID (EVERY 12 HOURS), START DATE AT 2.PM. END DATE 2.00 AM
  10. METAMIZOLE SODIUM [Suspect]
     Active Substance: METAMIZOLE SODIUM
     Dosage: 2.5 GRAM, BID (EVERY 12 HOURS), START DATE AT 2.PM. END DATE 2.00 AM
     Route: 042
  11. METAMIZOLE SODIUM [Suspect]
     Active Substance: METAMIZOLE SODIUM
     Dosage: 2.5 GRAM, BID (EVERY 12 HOURS), START DATE AT 2.PM. END DATE 2.00 AM
     Route: 042
  12. METAMIZOLE SODIUM [Suspect]
     Active Substance: METAMIZOLE SODIUM
     Dosage: 2.5 GRAM, BID (EVERY 12 HOURS), START DATE AT 2.PM. END DATE 2.00 AM
  13. FENTANYL [Suspect]
     Active Substance: FENTANYL
     Indication: Product used for unknown indication
     Dosage: 0.3 MILLIGRAM, START DATE AT 10.30 AM
  14. FENTANYL [Suspect]
     Active Substance: FENTANYL
     Dosage: 0.3 MILLIGRAM, START DATE AT 10.30 AM
     Route: 042
  15. FENTANYL [Suspect]
     Active Substance: FENTANYL
     Dosage: 0.3 MILLIGRAM, START DATE AT 10.30 AM
     Route: 042
  16. FENTANYL [Suspect]
     Active Substance: FENTANYL
     Dosage: 0.3 MILLIGRAM, START DATE AT 10.30 AM
  17. PROPOFOL [Suspect]
     Active Substance: PROPOFOL
     Indication: Product used for unknown indication
     Dosage: DOSAGE 140MG + 220, START DATE 10.30 AM END DATE 11.50 AM
  18. PROPOFOL [Suspect]
     Active Substance: PROPOFOL
     Dosage: DOSAGE 140MG + 220, START DATE 10.30 AM END DATE 11.50 AM
     Route: 042
  19. PROPOFOL [Suspect]
     Active Substance: PROPOFOL
     Dosage: DOSAGE 140MG + 220, START DATE 10.30 AM END DATE 11.50 AM
     Route: 042
  20. PROPOFOL [Suspect]
     Active Substance: PROPOFOL
     Dosage: DOSAGE 140MG + 220, START DATE 10.30 AM END DATE 11.50 AM
  21. ULTIVA [Suspect]
     Active Substance: REMIFENTANIL HYDROCHLORIDE
     Indication: Product used for unknown indication
     Dosage: 1 MILLIGRAM, START DATE AT 10.30. END DATE 11.50
  22. ULTIVA [Suspect]
     Active Substance: REMIFENTANIL HYDROCHLORIDE
     Dosage: 1 MILLIGRAM, START DATE AT 10.30. END DATE 11.50
     Route: 042
  23. ULTIVA [Suspect]
     Active Substance: REMIFENTANIL HYDROCHLORIDE
     Dosage: 1 MILLIGRAM, START DATE AT 10.30. END DATE 11.50
     Route: 042
  24. ULTIVA [Suspect]
     Active Substance: REMIFENTANIL HYDROCHLORIDE
     Dosage: 1 MILLIGRAM, START DATE AT 10.30. END DATE 11.50

REACTIONS (1)
  - Haematemesis [Recovered/Resolved]
